FAERS Safety Report 14907940 (Version 2)
Quarter: 2018Q3

REPORT INFORMATION
  Report Type: Report from Study
  Country: US (occurrence: US)
  Receive Date: 20180517
  Receipt Date: 20180706
  Transmission Date: 20181010
  Serious: Yes (Death)
  Sender: FDA-Public Use
  Company Number: US-PUMA BIOTECHNOLOGY, LTD.-2018US003757

PATIENT

DRUGS (5)
  1. LOPERAMIDE HYDROCHLORIDE. [Concomitant]
     Active Substance: LOPERAMIDE HYDROCHLORIDE
     Indication: PROPHYLAXIS AGAINST DIARRHOEA
     Dosage: UNK
     Dates: start: 20180321
  2. NERLYNX [Suspect]
     Active Substance: NERATINIB
     Dosage: 5 TABLETS, DAILY
     Route: 048
     Dates: start: 20180410
  3. CITALOPRAM [Concomitant]
     Active Substance: CITALOPRAM HYDROBROMIDE
     Indication: PRODUCT USED FOR UNKNOWN INDICATION
  4. COMPAZINE                          /00013302/ [Concomitant]
     Active Substance: PROCHLORPERAZINE EDISYLATE
     Indication: PRODUCT USED FOR UNKNOWN INDICATION
  5. NERLYNX [Suspect]
     Active Substance: NERATINIB
     Indication: BREAST CANCER FEMALE
     Dosage: 6 TABLETS, DAILY
     Route: 048
     Dates: start: 20180321

REACTIONS (10)
  - Diarrhoea [Recovering/Resolving]
  - Metastases to lung [Fatal]
  - Metastases to lymph nodes [Fatal]
  - Dyspnoea [Fatal]
  - Off label use [Unknown]
  - Metastases to central nervous system [Fatal]
  - Nausea [Unknown]
  - Drug dose omission [Unknown]
  - Breast cancer metastatic [Unknown]
  - Vomiting [Unknown]

NARRATIVE: CASE EVENT DATE: 20180421
